FAERS Safety Report 4390705-3 (Version None)
Quarter: 2004Q2

REPORT INFORMATION
  Report Type: 
  Country: None (occurrence: None)
  Receive Date: 20040630
  Receipt Date: 20040617
  Transmission Date: 20050107
  Serious: Yes (Death)
  Sender: FDA-Public Use
  Company Number: S04-USA-03514-01

PATIENT
  Age: 14 Year
  Sex: Female

DRUGS (1)
  1. LEXAPRO [Suspect]
     Dates: start: 20040401, end: 20040526

REACTIONS (1)
  - COMPLETED SUICIDE [None]
